FAERS Safety Report 20716196 (Version 1)
Quarter: 2022Q2

REPORT INFORMATION
  Report Type: Spontaneous
  Country: US (occurrence: US)
  Receive Date: 20220416
  Receipt Date: 20220416
  Transmission Date: 20220721
  Serious: No
  Sender: FDA-Public Use
  Company Number: US-ENDO PHARMACEUTICALS INC-2021-013617

PATIENT
  Sex: Male

DRUGS (2)
  1. AVEED [Suspect]
     Active Substance: TESTOSTERONE UNDECANOATE
     Indication: Testicular failure
     Dosage: 750 MG, ONCE EVERY 10WK (SECOND INJECTION)
     Route: 030
  2. AVEED [Suspect]
     Active Substance: TESTOSTERONE UNDECANOATE
     Dosage: 750 MG, ONCE EVERY 10WK (FIRST INJECTION)
     Route: 030
     Dates: start: 20210925

REACTIONS (2)
  - Abdominal distension [Unknown]
  - Swelling face [Unknown]

NARRATIVE: CASE EVENT DATE: 20210101
